FAERS Safety Report 22941968 (Version 6)
Quarter: 2023Q4

REPORT INFORMATION
  Report Type: Report from Study
  Country: IT (occurrence: IT)
  Receive Date: 20230914
  Receipt Date: 20231208
  Transmission Date: 20240109
  Serious: No
  Sender: FDA-Public Use
  Company Number: IT-JNJFOC-20230906602

PATIENT
  Age: 55 Year
  Sex: Male

DRUGS (10)
  1. SPRAVATO [Suspect]
     Active Substance: ESKETAMINE
     Indication: Depression
     Dosage: 56 MG (2 DEVICES)
     Dates: start: 20230817, end: 20230817
  2. SPRAVATO [Suspect]
     Active Substance: ESKETAMINE
     Dosage: 56 MG (2 DEVICES)
     Dates: start: 20230822, end: 20230822
  3. SPRAVATO [Suspect]
     Active Substance: ESKETAMINE
     Dosage: 84 MG (3 DEVICES)
     Dates: start: 20230824, end: 20230824
  4. SPRAVATO [Suspect]
     Active Substance: ESKETAMINE
     Dosage: 84 MG (3 DEVICES)
     Dates: start: 20230829, end: 20230829
  5. SPRAVATO [Suspect]
     Active Substance: ESKETAMINE
     Dosage: 56 MG (2 DEVICES)
     Dates: start: 20230831, end: 20230831
  6. SPRAVATO [Suspect]
     Active Substance: ESKETAMINE
     Dosage: 56 MG (2 DEVICES)
     Dates: start: 20230904, end: 20230904
  7. SPRAVATO [Suspect]
     Active Substance: ESKETAMINE
     Dosage: 56 MG (2 DEVICES)
     Dates: start: 20230907, end: 20230907
  8. SPRAVATO [Suspect]
     Active Substance: ESKETAMINE
     Dosage: 56 MG (2 DEVICES)
     Dates: start: 20230914, end: 20230914
  9. SPRAVATO [Suspect]
     Active Substance: ESKETAMINE
     Dosage: 56 MG (2 DEVICES)
     Dates: start: 20230918, end: 20230918
  10. SPRAVATO [Suspect]
     Active Substance: ESKETAMINE
     Dosage: 56 MG (2 DEVICES)
     Dates: start: 20230925, end: 20230925

REACTIONS (3)
  - Blood pressure increased [Recovered/Resolved]
  - Dissociative disorder [Recovered/Resolved]
  - Hypertension [Recovered/Resolved]

NARRATIVE: CASE EVENT DATE: 20230824
